FAERS Safety Report 14365050 (Version 1)
Quarter: 2018Q1

REPORT INFORMATION
  Report Type: Spontaneous
  Country: US (occurrence: US)
  Receive Date: 20180108
  Receipt Date: 20180108
  Transmission Date: 20180509
  Serious: No
  Sender: FDA-Public Use
  Company Number: US-ROCHE-1982524

PATIENT
  Age: 32 Year
  Sex: Female

DRUGS (3)
  1. ALTEPLASE. [Suspect]
     Active Substance: ALTEPLASE
     Dosage: FOR THE THIRD ROUND
     Route: 034
  2. DORNASE ALFA. [Suspect]
     Active Substance: DORNASE ALFA
     Indication: EMPYEMA
     Dosage: FOR THE FIRST TWO TREATMENTS
     Route: 034
  3. ALTEPLASE. [Suspect]
     Active Substance: ALTEPLASE
     Indication: EMPYEMA
     Dosage: FOR THE FIRST TWO TREATMENTS
     Route: 034

REACTIONS (1)
  - Pregnancy [Unknown]
